FAERS Safety Report 13082049 (Version 2)
Quarter: 2017Q1

REPORT INFORMATION
  Report Type: Report from Study
  Country: US (occurrence: US)
  Receive Date: 20170103
  Receipt Date: 20170113
  Transmission Date: 20170428
  Serious: Yes (Hospitalization)
  Sender: FDA-Public Use
  Company Number: US-BAYER-2014-174678

PATIENT
  Age: 81 Year
  Sex: Female

DRUGS (3)
  1. NEXAVAR [Suspect]
     Active Substance: SORAFENIB
     Indication: HEPATIC CANCER
     Dosage: 200 MG, BID
     Route: 048
     Dates: end: 201611
  2. NEXAVAR [Suspect]
     Active Substance: SORAFENIB
     Indication: HEPATIC CANCER
     Dosage: 400 MG, BID
     Route: 048
     Dates: start: 20141110
  3. STIVARGA [Suspect]
     Active Substance: REGORAFENIB
     Indication: HEPATIC CANCER
     Dosage: 40 MG, BID
     Route: 048
     Dates: start: 20161226

REACTIONS (14)
  - Blood pressure increased [None]
  - Pyrexia [None]
  - Blood sodium decreased [Recovered/Resolved]
  - Rash generalised [Recovered/Resolved]
  - Blood sodium decreased [Recovered/Resolved]
  - Off label use [None]
  - Gallbladder pain [Recovered/Resolved]
  - Confusional state [Recovered/Resolved]
  - Vomiting [None]
  - Blood sodium decreased [None]
  - Rash erythematous [None]
  - Diarrhoea [None]
  - Weight decreased [Not Recovered/Not Resolved]
  - Rash [None]

NARRATIVE: CASE EVENT DATE: 20141201
